FAERS Safety Report 12266038 (Version 1)
Quarter: 2016Q2

REPORT INFORMATION
  Report Type: Spontaneous
  Country: GB (occurrence: GB)
  Receive Date: 20160413
  Receipt Date: 20160413
  Transmission Date: 20160815
  Serious: Yes (Other)
  Sender: FDA-Public Use
  Company Number: PHHY2016GB046944

PATIENT
  Age: 57 Year
  Sex: Female
  Weight: 78.46 kg

DRUGS (1)
  1. CLARITHROMYCIN SANDOZ [Suspect]
     Active Substance: CLARITHROMYCIN
     Indication: PLEURAL EFFUSION
     Dosage: 1 DF, UNK
     Route: 048
     Dates: start: 20151103, end: 20151109

REACTIONS (7)
  - Vulvovaginal discomfort [Recovered/Resolved]
  - Oral discomfort [Unknown]
  - Tinnitus [Not Recovered/Not Resolved]
  - Mouth ulceration [Recovered/Resolved]
  - Dysgeusia [Recovered/Resolved]
  - Gingival ulceration [Recovered/Resolved]
  - Tongue ulceration [Recovered/Resolved]

NARRATIVE: CASE EVENT DATE: 20151103
